FAERS Safety Report 6015396-7 (Version None)
Quarter: 2008Q4

REPORT INFORMATION
  Report Type: 
  Country: None (occurrence: None)
  Receive Date: 20081222
  Receipt Date: 20081211
  Transmission Date: 20090506
  Serious: Yes (Other)
  Sender: FDA-Public Use
  Company Number: US-BIOGENIDEC-2007BI010355

PATIENT
  Age: 48 Year
  Sex: Female

DRUGS (7)
  1. TYSABRI [Suspect]
     Indication: MULTIPLE SCLEROSIS
     Route: 042
     Dates: start: 20061107, end: 20070410
  2. TYSABRI [Suspect]
     Route: 042
     Dates: start: 20071204
  3. WELLBUTRIN [Concomitant]
  4. MOTRIN [Concomitant]
  5. AMANTADINE HCL [Concomitant]
  6. AMBIEN [Concomitant]
  7. IMIPRAMINE [Concomitant]

REACTIONS (9)
  - ARTHROPATHY [None]
  - BALANCE DISORDER [None]
  - COLON CANCER [None]
  - DYSARTHRIA [None]
  - DYSGRAPHIA [None]
  - HAEMATOCHEZIA [None]
  - HYPOAESTHESIA [None]
  - MUSCULOSKELETAL STIFFNESS [None]
  - PARAESTHESIA [None]
